FAERS Safety Report 12048503 (Version 3)
Quarter: 2016Q1

REPORT INFORMATION
  Report Type: Report from Study
  Country: US (occurrence: US)
  Receive Date: 20160209
  Receipt Date: 20160229
  Transmission Date: 20160526
  Serious: Yes (Hospitalization, Other)
  Sender: FDA-Public Use
  Company Number: US-ROCHE-1704892

PATIENT
  Age: 61 Year
  Sex: Male
  Weight: 76 kg

DRUGS (3)
  1. BEVACIZUMAB [Suspect]
     Active Substance: BEVACIZUMAB
     Indication: PANCREATIC CARCINOMA
     Dosage: 10 MG/KG IV OVER 60-90 MIN. ON DAYS 1 AND 15, 28 DAY CYCLE?LAST ADMINISTRATION DATE: 07/SEP/2005
     Route: 042
     Dates: start: 20050323
  2. ERLOTINIB [Suspect]
     Active Substance: ERLOTINIB
     Indication: PANCREATIC CARCINOMA
     Dosage: 150 MG PO QD, ON DAYS 1-5, 8-12 AND 15-26 , 28 DAY CYCLE?LAST ADMINISTRATION DATE: 18/SEP/2005
     Route: 048
     Dates: start: 20050323
  3. GEMCITABINE [Suspect]
     Active Substance: GEMCITABINE\GEMCITABINE HYDROCHLORIDE
     Indication: PANCREATIC CARCINOMA
     Dosage: 1000 MG/M2 IV OVER 30 MIN, ON DAYS 1, 8 AND 15?28 DAY CYCLE?LAST ADMINISTRATION: SEP/2005
     Route: 042
     Dates: start: 20050323

REACTIONS (5)
  - Renal failure [Unknown]
  - Proteinuria [Unknown]
  - Acute kidney injury [Unknown]
  - Thrombotic microangiopathy [Unknown]
  - Platelet count decreased [Unknown]

NARRATIVE: CASE EVENT DATE: 20050921
